FAERS Safety Report 15077198 (Version 1)
Quarter: 2018Q2

REPORT INFORMATION
  Report Type: Spontaneous
  Country: US (occurrence: US)
  Receive Date: 20180607
  Receipt Date: 20180607
  Transmission Date: 20180711
  Serious: Yes (Death)
  Sender: FDA-Public Use
  Company Number: None

PATIENT
  Sex: Female

DRUGS (2)
  1. TEMOZOLOMIDE 140, 20MG, 5 MG SANDOZ [Suspect]
     Active Substance: TEMOZOLOMIDE
     Indication: CHEMOTHERAPY
     Route: 048
     Dates: start: 20180208, end: 20180504
  2. TEMOZOLOMIDE 140, 20MG, 5 MG SANDOZ [Suspect]
     Active Substance: TEMOZOLOMIDE
     Indication: BRAIN NEOPLASM MALIGNANT
     Route: 048
     Dates: start: 20180208, end: 20180504

REACTIONS (1)
  - Death [None]

NARRATIVE: CASE EVENT DATE: 20180504
